FAERS Safety Report 20601464 (Version 1)
Quarter: 2022Q1

REPORT INFORMATION
  Report Type: Spontaneous
  Country: US (occurrence: None)
  Receive Date: 20220315
  Receipt Date: 20220315
  Transmission Date: 20220424
  Serious: Yes (Hospitalization)
  Sender: FDA-Public Use
  Company Number: None

PATIENT
  Age: 60 Year
  Sex: Female

DRUGS (11)
  1. GILENYA [Suspect]
     Active Substance: FINGOLIMOD HYDROCHLORIDE
     Indication: Multiple sclerosis
     Dosage: FREQUENCY : EVERY OTHER DAY;?
     Route: 048
     Dates: start: 20150814
  2. ALLOPURINOL [Concomitant]
     Active Substance: ALLOPURINOL
  3. ASPIRIN [Concomitant]
     Active Substance: ASPIRIN
  4. ATORVASTATIN [Concomitant]
     Active Substance: ATORVASTATIN
  5. BENICAR [Concomitant]
     Active Substance: OLMESARTAN MEDOXOMIL
  6. EXCEDRIN [Concomitant]
     Active Substance: ACETAMINOPHEN\ASPIRIN\CAFFEINE
  7. IRON [Concomitant]
     Active Substance: IRON
  8. LISINOPRIL [Concomitant]
     Active Substance: LISINOPRIL
  9. MELOXICAM [Concomitant]
     Active Substance: MELOXICAM
  10. VITAMIN D [Concomitant]
     Active Substance: VITAMIN D NOS
  11. ZOLOFT [Concomitant]
     Active Substance: SERTRALINE HYDROCHLORIDE

REACTIONS (4)
  - COVID-19 [None]
  - Fatigue [None]
  - Neurogenic bladder [None]
  - Chronic kidney disease [None]

NARRATIVE: CASE EVENT DATE: 20220110
